FAERS Safety Report 10783159 (Version 1)
Quarter: 2015Q1

REPORT INFORMATION
  Report Type: Spontaneous
  Country: US (occurrence: US)
  Receive Date: 20150210
  Receipt Date: 20150210
  Transmission Date: 20150721
  Serious: No
  Sender: FDA-Public Use
  Company Number: US-GLAXOSMITHKLINE-A1061124A

PATIENT

DRUGS (1)
  1. NICORETTE [Suspect]
     Active Substance: NICOTINE
     Indication: PRODUCT USED FOR UNKNOWN INDICATION

REACTIONS (12)
  - Nausea [Unknown]
  - Pyrexia [Unknown]
  - Eye disorder [Unknown]
  - Hypertension [Unknown]
  - Feeling of body temperature change [Unknown]
  - Swelling face [Unknown]
  - Vertigo [Unknown]
  - Drug administration error [Unknown]
  - Hyperhidrosis [Unknown]
  - Erythema [Unknown]
  - Nasopharyngitis [Unknown]
  - Dizziness [Unknown]
